FAERS Safety Report 6839330-2 (Version None)
Quarter: 2010Q3

REPORT INFORMATION
  Report Type: 
  Country: None (occurrence: None)
  Receive Date: 20100714
  Receipt Date: 20100701
  Transmission Date: 20110219
  Serious: No
  Sender: FDA-Public Use
  Company Number: PHHY2010AU34280

PATIENT
  Sex: Male

DRUGS (6)
  1. EXFORGE [Suspect]
     Dosage: UNK
  2. CARTIA XT [Concomitant]
  3. MACUVISION [Concomitant]
  4. LUTEINVISION [Concomitant]
  5. IRON [Concomitant]
  6. LIPITOR [Concomitant]
     Dosage: UNK

REACTIONS (1)
  - VISUAL IMPAIRMENT [None]
